FAERS Safety Report 7179502-3 (Version None)
Quarter: 2010Q4

REPORT INFORMATION
  Report Type: 
  Country: None (occurrence: None)
  Receive Date: 20101221
  Receipt Date: 20101215
  Transmission Date: 20110411
  Serious: Yes (Hospitalization)
  Sender: FDA-Public Use
  Company Number: JP-MPIJNJ-2010-04237

PATIENT

DRUGS (17)
  1. VELCADE [Suspect]
     Indication: MULTIPLE MYELOMA
     Dosage: 1 MG/M2, UNK
     Route: 042
     Dates: start: 20100611, end: 20100622
  2. VELCADE [Suspect]
     Dosage: 0.7 MG, UNK
     Route: 042
     Dates: start: 20100702, end: 20100713
  3. DECADRON [Suspect]
     Indication: MULTIPLE MYELOMA
     Dosage: 1 MG, UNK
     Route: 048
     Dates: start: 20100611, end: 20100701
  4. DECADRON [Suspect]
     Dosage: 0.5 MG, UNK
     Route: 048
     Dates: start: 20100702, end: 20100715
  5. BLOPRESS [Concomitant]
     Dosage: 8 MG, UNK
     Route: 048
  6. CRESTOR [Concomitant]
     Dosage: 2.5 MG, UNK
     Route: 048
  7. ANPLAG [Concomitant]
     Dosage: 200 MG, UNK
     Route: 048
     Dates: end: 20100807
  8. ONEALFA [Concomitant]
     Dosage: 1 UG, UNK
     Route: 048
  9. URINORM [Concomitant]
     Dosage: UNK
     Route: 048
     Dates: end: 20100811
  10. TAKEPRON [Concomitant]
     Dosage: 15 MG, UNK
     Route: 048
  11. BISOLVON                           /00004702/ [Concomitant]
     Dosage: 12 MG, UNK
     Route: 048
     Dates: end: 20100807
  12. NORVASC [Concomitant]
     Dosage: 5 MG, UNK
     Route: 048
  13. JUVELA N [Concomitant]
     Dosage: 600 MG, UNK
     Route: 048
  14. METHYCOBAL                         /00324901/ [Concomitant]
     Dosage: 1500 UG, UNK
     Route: 048
  15. SODIUM BICARBONATE [Concomitant]
     Dosage: 2 G, UNK
     Route: 048
     Dates: end: 20100807
  16. ZYLORIC                            /00003301/ [Concomitant]
     Dosage: 200 MG, UNK
     Route: 048
     Dates: start: 20100611, end: 20100811
  17. LENDORMIN [Concomitant]
     Dosage: 0.25 MG, UNK
     Route: 048

REACTIONS (3)
  - HEPATIC FUNCTION ABNORMAL [None]
  - PLATELET COUNT DECREASED [None]
  - UVEITIS [None]
